FAERS Safety Report 23719885 (Version 2)
Quarter: 2024Q2

REPORT INFORMATION
  Report Type: Spontaneous
  Country: PT (occurrence: PT)
  Receive Date: 20240408
  Receipt Date: 20240531
  Transmission Date: 20240716
  Serious: Yes (Other)
  Sender: FDA-Public Use
  Company Number: None

PATIENT
  Age: 69 Year
  Sex: Male

DRUGS (1)
  1. ERBITUX [Suspect]
     Active Substance: CETUXIMAB
     Indication: Product used for unknown indication
     Dosage: UNK UNK, UNKNOWN (5 MG/ML)
     Route: 042
     Dates: start: 20240312, end: 20240312

REACTIONS (6)
  - Oxygen saturation decreased [Unknown]
  - Abdominal pain upper [Unknown]
  - Hyperhidrosis [Unknown]
  - Hypotension [Unknown]
  - Rash [Unknown]
  - Pruritus [Unknown]

NARRATIVE: CASE EVENT DATE: 20240312
